FAERS Safety Report 21185332 (Version 1)
Quarter: 2022Q3

REPORT INFORMATION
  Report Type: Spontaneous
  Country: US (occurrence: US)
  Receive Date: 20220808
  Receipt Date: 20220808
  Transmission Date: 20221027
  Serious: Yes (Other)
  Sender: FDA-Public Use
  Company Number: US-BRISTOL-MYERS SQUIBB COMPANY-2022-082518

PATIENT
  Age: 53 Year
  Sex: Male
  Weight: 90.6 kg

DRUGS (17)
  1. REVLIMID [Suspect]
     Active Substance: LENALIDOMIDE
     Indication: Plasma cell myeloma
     Dosage: 21/28 DAYS
     Route: 048
  2. ACYCLOVIR [Concomitant]
     Active Substance: ACYCLOVIR
     Dates: start: 20200522
  3. ASPIRIN [Concomitant]
     Active Substance: ASPIRIN
  4. BACTRIM COMPOSITUM [Concomitant]
     Dosage: 400-80 MG
     Dates: start: 20200522
  5. COMPAZINE [Concomitant]
     Active Substance: PROCHLORPERAZINE MALEATE
     Dates: start: 20200522
  6. VITAMINS [Concomitant]
     Active Substance: VITAMINS
     Dates: start: 20200522
  7. OMEPRAZOLE [Concomitant]
     Active Substance: OMEPRAZOLE
     Dates: start: 20200522
  8. OXYCODONE HYDROCHLORIDE [Concomitant]
     Active Substance: OXYCODONE HYDROCHLORIDE
  9. SERTRALINE HYDROCHLORIDE [Concomitant]
     Active Substance: SERTRALINE HYDROCHLORIDE
  10. VITAMIN D NOS [Concomitant]
     Active Substance: VITAMIN D NOS
     Dates: start: 20200522
  11. ZOFRAN [Concomitant]
     Active Substance: ONDANSETRON HYDROCHLORIDE
  12. REQUIP [Concomitant]
     Active Substance: ROPINIROLE HYDROCHLORIDE
  13. SENNOSIDES A AND B [Concomitant]
     Active Substance: SENNOSIDES A AND B
  14. SILDENAFIL CITRATE [Concomitant]
     Active Substance: SILDENAFIL CITRATE
  15. TAMSULOSIN [Concomitant]
     Active Substance: TAMSULOSIN
  16. TYLENOL [Concomitant]
     Active Substance: ACETAMINOPHEN
     Route: 048
  17. COVID-19 VACCINE NOS [Concomitant]
     Active Substance: COVID-19 VACCINE NOS

REACTIONS (6)
  - Pruritus [Unknown]
  - Product complaint [Unknown]
  - Rash [Unknown]
  - Diarrhoea [Unknown]
  - Anaemia [Recovering/Resolving]
  - Fatigue [Unknown]
